FAERS Safety Report 5469252-3 (Version None)
Quarter: 2007Q3

REPORT INFORMATION
  Report Type: 
  Country: None (occurrence: None)
  Receive Date: 20070924
  Receipt Date: 20070223
  Transmission Date: 20080115
  Serious: Yes (Hospitalization)
  Sender: FDA-Public Use
  Company Number: 2007VX000717

PATIENT
  Age: 77 Year
  Sex: Female
  Weight: 66 kg

DRUGS (9)
  1. PERGOLIDE MESYLATE [Suspect]
     Indication: PARKINSON'S DISEASE
     Dosage: ;PO
     Route: 048
     Dates: start: 20000101, end: 20060601
  2. SINEMET [Concomitant]
  3. AMANTADINE HYDROCHLORIDE [Concomitant]
  4. DOMPERIDONE [Concomitant]
  5. OXYBUTYNIN CHLORIDE [Concomitant]
  6. MIANSERIN HYDROCHLORIDE [Concomitant]
  7. MACROGOL [Concomitant]
  8. POTASSIUM CHLORIDE [Concomitant]
  9. PINAVERIUM BROMIDE [Concomitant]

REACTIONS (5)
  - CARDIAC FAILURE [None]
  - FACE INJURY [None]
  - FALL [None]
  - MALAISE [None]
  - SKELETAL INJURY [None]
